FAERS Safety Report 10771802 (Version 5)
Quarter: 2022Q4

REPORT INFORMATION
  Report Type: Report from Study
  Country: CA (occurrence: CA)
  Receive Date: 20150206
  Receipt Date: 20221025
  Transmission Date: 20230112
  Serious: Yes (Life-Threatening, Hospitalization)
  Sender: FDA-Public Use
  Company Number: PHHY2014CA163869

PATIENT
  Age: 52 Year
  Sex: Female

DRUGS (1)
  1. GILENYA [Suspect]
     Active Substance: FINGOLIMOD HYDROCHLORIDE
     Indication: Relapsing-remitting multiple sclerosis
     Dosage: UNK
     Route: 048
     Dates: start: 20140825

REACTIONS (5)
  - Suicidal ideation [Unknown]
  - Depression [Unknown]
  - Fibromyalgia [Unknown]
  - Product dose omission issue [Unknown]
  - Product supply issue [Unknown]

NARRATIVE: CASE EVENT DATE: 20141201
